FAERS Safety Report 10750796 (Version 2)
Quarter: 2015Q1

REPORT INFORMATION
  Report Type: Spontaneous
  Country: US (occurrence: None)
  Receive Date: 20150128
  Receipt Date: 20150211
  Transmission Date: 20150721
  Serious: Yes (Other)
  Sender: FDA-Public Use
  Company Number: USW201501-000011

PATIENT
  Age: 64 Year
  Sex: Male
  Weight: 65.77 kg

DRUGS (8)
  1. AMANTADINE [Concomitant]
     Active Substance: AMANTADINE
  2. SINEMET [Concomitant]
     Active Substance: CARBIDOPA\LEVODOPA
  3. CLOPIDOGREL [Concomitant]
     Active Substance: CLOPIDOGREL BISULFATE
  4. LEXIPRO (ESCITALOPRAM) [Concomitant]
  5. APOKYN [Suspect]
     Active Substance: APOMORPHINE HYDROCHLORIDE
     Indication: PARKINSON^S DISEASE
     Dosage: 0.2 ML, ONCE, SITE: RIGHT UPPER ARM, SUBCUTANEOUS
     Route: 058
     Dates: start: 20150113, end: 20150113
  6. TAMSULOSIN [Concomitant]
     Active Substance: TAMSULOSIN
  7. METOPROLOL [Concomitant]
     Active Substance: METOPROLOL
  8. TIGAN (TRIMETHOBENZAMIDE HYDROCHLORIDE) [Concomitant]

REACTIONS (2)
  - Blood pressure increased [None]
  - Nausea [None]

NARRATIVE: CASE EVENT DATE: 20150113
